FAERS Safety Report 6533267-4 (Version None)
Quarter: 2010Q1

REPORT INFORMATION
  Report Type: 
  Country: None (occurrence: None)
  Receive Date: 20100111
  Receipt Date: 20100105
  Transmission Date: 20100710
  Serious: Yes (Death, Hospitalization, Other)
  Sender: FDA-Public Use
  Company Number: US-CELGENEUS-163-CCAZA-10010109

PATIENT

DRUGS (6)
  1. AZACITIDINE INJECTABLE [Suspect]
     Dosage: 37.5-75 MG/M2
     Route: 051
  2. CYTARABINE [Suspect]
     Route: 051
  3. CYTARABINE [Suspect]
     Dosage: 1G/M2, DAILY CIV DAYS 1-4 (AGE{65) OR DAYS 1-3 (AGE}=65YRS)
     Route: 051
  4. LEVOFLOXACIN [Concomitant]
     Indication: PROPHYLAXIS
     Route: 048
  5. FLUCONAZOLE [Concomitant]
     Indication: PROPHYLAXIS
     Route: 048
  6. NEUPOGEN [Concomitant]
     Route: 065

REACTIONS (9)
  - DIARRHOEA [None]
  - DISEASE PROGRESSION [None]
  - FEBRILE NEUTROPENIA [None]
  - HAEMORRHAGE INTRACRANIAL [None]
  - MUCOSAL INFLAMMATION [None]
  - RASH [None]
  - RESPIRATORY FAILURE [None]
  - SEPSIS [None]
  - VOMITING [None]
